FAERS Safety Report 5566474-8 (Version None)
Quarter: 2007Q4

REPORT INFORMATION
  Report Type: 
  Country: None (occurrence: None)
  Receive Date: 20071219
  Receipt Date: 20071213
  Transmission Date: 20080405
  Serious: Yes (Death, Hospitalization)
  Sender: FDA-Public Use
  Company Number: JP-AVENTIS-200712622JP

PATIENT
  Age: 68 Year
  Sex: Male
  Weight: 55 kg

DRUGS (2)
  1. TAXOTERE [Suspect]
     Route: 041
     Dates: start: 20070921, end: 20070921
  2. TS-1 [Suspect]
     Route: 048
     Dates: start: 20070914, end: 20070925

REACTIONS (7)
  - GASTRIC CANCER [None]
  - INTERSTITIAL LUNG DISEASE [None]
  - PHARYNGITIS [None]
  - PYREXIA [None]
  - STOMATITIS [None]
  - SWELLING FACE [None]
  - WHITE BLOOD CELL COUNT DECREASED [None]
